FAERS Safety Report 11716054 (Version 2)
Quarter: 2015Q4

REPORT INFORMATION
  Report Type: Report from Study
  Country: IT (occurrence: IT)
  Receive Date: 20151109
  Receipt Date: 20151229
  Transmission Date: 20160304
  Serious: Yes (Other)
  Sender: FDA-Public Use
  Company Number: PHHY2015IT144918

PATIENT

DRUGS (1)
  1. TEGRETOL [Suspect]
     Active Substance: CARBAMAZEPINE
     Indication: FOETAL EXPOSURE DURING PREGNANCY
     Dosage: MATERNAL DOSE:1200 MG DAILY
     Route: 064
     Dates: start: 2010

REACTIONS (3)
  - Renal aplasia [Unknown]
  - Foetal exposure during pregnancy [Unknown]
  - Nephroptosis [Unknown]
